FAERS Safety Report 14942178 (Version 2)
Quarter: 2018Q4

REPORT INFORMATION
  Report Type: Spontaneous
  Country: US (occurrence: US)
  Receive Date: 20180528
  Receipt Date: 20181205
  Transmission Date: 20190204
  Serious: No
  Sender: FDA-Public Use
  Company Number: US-AMGEN-USASP2018069924

PATIENT
  Age: 68 Year
  Sex: Female

DRUGS (2)
  1. CORTISONE [Suspect]
     Active Substance: CORTISONE\HYDROCORTISONE
     Indication: LIGAMENT SPRAIN
     Dosage: UNK (INJECTION)
     Route: 065
     Dates: start: 20180330
  2. ENBREL [Suspect]
     Active Substance: ETANERCEPT
     Indication: RHEUMATOID ARTHRITIS
     Dosage: 50 MG, QWK
     Route: 065

REACTIONS (6)
  - Ligament sprain [Unknown]
  - Contusion [Unknown]
  - Post procedural infection [Unknown]
  - Oedema peripheral [Unknown]
  - Arthralgia [Unknown]
  - Joint injury [Unknown]

NARRATIVE: CASE EVENT DATE: 2018
